FAERS Safety Report 7825069-3 (Version None)
Quarter: 2011Q4

REPORT INFORMATION
  Report Type: 
  Country: None (occurrence: None)
  Receive Date: 20111019
  Receipt Date: 20110601
  Transmission Date: 20120403
  Serious: No
  Sender: FDA-Public Use
  Company Number: US-BRISTOL-MYERS SQUIBB COMPANY-15795784

PATIENT
  Age: 63 Year
  Sex: Female

DRUGS (1)
  1. AVALIDE [Suspect]
     Indication: HYPERTENSION
     Dosage: STARTED 2-3 YRS AGO RX NO:103474128717

REACTIONS (1)
  - INTRAOCULAR PRESSURE FLUCTUATION [None]
